FAERS Safety Report 12099445 (Version 2)
Quarter: 2016Q2

REPORT INFORMATION
  Report Type: Spontaneous
  Country: US (occurrence: US)
  Receive Date: 20160222
  Receipt Date: 20160421
  Transmission Date: 20160815
  Serious: No
  Sender: FDA-Public Use
  Company Number: US-ASTRAZENECA-2016SE14783

PATIENT
  Sex: Female

DRUGS (3)
  1. FASLODEX [Suspect]
     Active Substance: FULVESTRANT
     Route: 030
  2. IBRANCE [Suspect]
     Active Substance: PALBOCICLIB
     Route: 048
  3. ZOMETA [Suspect]
     Active Substance: ZOLEDRONIC ACID
     Route: 065

REACTIONS (4)
  - Throat lesion [Recovered/Resolved]
  - Pharyngitis streptococcal [Recovered/Resolved]
  - Diabetes mellitus [Unknown]
  - Hypoaesthesia oral [Recovered/Resolved]
